FAERS Safety Report 6228101-6 (Version None)
Quarter: 2009Q2

REPORT INFORMATION
  Report Type: 
  Country: None (occurrence: None)
  Receive Date: 20090612
  Receipt Date: 20090429
  Transmission Date: 20091009
  Serious: No
  Sender: FDA-Public Use
  Company Number: US-BAYER-200919490NA

PATIENT
  Age: 71 Year
  Sex: Male

DRUGS (5)
  1. AVELOX [Suspect]
     Indication: BRONCHITIS
  2. AVELOX [Suspect]
     Dates: start: 20090101
  3. CIPRO [Suspect]
     Indication: BRONCHITIS
  4. KEFLEX [Concomitant]
     Dates: start: 20090101
  5. PROVENTIL-HFA [Concomitant]
     Dates: start: 20090101

REACTIONS (1)
  - BRONCHITIS [None]
